FAERS Safety Report 12689791 (Version 2)
Quarter: 2016Q3

REPORT INFORMATION
  Report Type: Report from Study
  Country: BR (occurrence: BR)
  Receive Date: 20160826
  Receipt Date: 20160928
  Transmission Date: 20161109
  Serious: Yes (Hospitalization)
  Sender: FDA-Public Use
  Company Number: PHHY2016BR116320

PATIENT
  Sex: Female
  Weight: 87 kg

DRUGS (1)
  1. DIOVAN AMLO FIX [Suspect]
     Active Substance: AMLODIPINE\VALSARTAN
     Indication: HYPERTENSION
     Dosage: 1 DF (AMLODIPINE 5 MG VALSARTAN160 MG), QD
     Route: 048

REACTIONS (3)
  - Pain [Unknown]
  - Body height decreased [Unknown]
  - Femur fracture [Recovering/Resolving]
